FAERS Safety Report 4680292-4 (Version None)
Quarter: 2005Q2

REPORT INFORMATION
  Report Type: 
  Country: None (occurrence: None)
  Receive Date: 20050601
  Receipt Date: 20050519
  Transmission Date: 20051028
  Serious: Yes (Hospitalization)
  Sender: FDA-Public Use
  Company Number: 2005079486

PATIENT
  Age: 68 Year
  Sex: Male

DRUGS (3)
  1. DOXAZOSIN (DOXAZOSIN) [Suspect]
     Indication: HYPERTENSION
  2. SALMETEROL (SALETEROL) [Concomitant]
  3. FLIXOTIDE ^GLAXO^ (FLUTICASONE PROPIONATE) [Concomitant]

REACTIONS (7)
  - ARRHYTHMIA [None]
  - ATRIAL FLUTTER [None]
  - BLOOD PRESSURE SYSTOLIC INCREASED [None]
  - BODY TEMPERATURE DECREASED [None]
  - CHEST PAIN [None]
  - HEART RATE INCREASED [None]
  - PALPITATIONS [None]
